FAERS Safety Report 12261218 (Version 5)
Quarter: 2018Q4

REPORT INFORMATION
  Report Type: Spontaneous
  Country: US (occurrence: US)
  Receive Date: 20160412
  Receipt Date: 20181026
  Transmission Date: 20190204
  Serious: Yes (Other)
  Sender: FDA-Public Use
  Company Number: US-INCYTE CORPORATION-2016IN000093

PATIENT

DRUGS (13)
  1. JAKAFI [Suspect]
     Active Substance: RUXOLITINIB
     Dosage: 10 MG, QD PM (20 MG TABLET BROKEN IN HALF)
     Route: 048
     Dates: end: 20180611
  2. HYDROXYUREA. [Suspect]
     Active Substance: HYDROXYUREA
     Dosage: 500 MG, QOD
     Route: 048
     Dates: start: 20160108
  3. AIRBORNE [Concomitant]
     Active Substance: HERBALS\MINERALS\VITAMINS
     Indication: PRODUCT USED FOR UNKNOWN INDICATION
     Dosage: UNK, QD
     Route: 048
  4. FERROUS SULFATE. [Concomitant]
     Active Substance: FERROUS SULFATE
     Indication: PRODUCT USED FOR UNKNOWN INDICATION
     Dosage: 325 MG, UNK
     Route: 065
  5. JAKAFI [Suspect]
     Active Substance: RUXOLITINIB
     Indication: MYELOFIBROSIS
     Dosage: 20 MG, QD (AT BEDITME)
     Route: 048
     Dates: start: 20160127
  6. JAKAFI [Suspect]
     Active Substance: RUXOLITINIB
     Dosage: 5 MG, BID
     Route: 048
  7. BENADRYL [Concomitant]
     Active Substance: DIPHENHYDRAMINE HYDROCHLORIDE
     Indication: HYPERSENSITIVITY
     Dosage: UNK UNK, PRN
     Route: 048
  8. STOOL SOFTENER (DOCUSATE) [Concomitant]
     Active Substance: DOCUSATE
     Indication: PRODUCT USED FOR UNKNOWN INDICATION
     Dosage: UNK, PRN
     Route: 065
  9. JAKAFI [Suspect]
     Active Substance: RUXOLITINIB
     Indication: POLYCYTHAEMIA VERA
     Dosage: 20 MG, BID
     Route: 048
     Dates: start: 20151222, end: 20160120
  10. HYDROXYUREA. [Suspect]
     Active Substance: HYDROXYUREA
     Indication: POLYCYTHAEMIA VERA
     Dosage: 500 MG, QD
     Route: 048
     Dates: end: 20160105
  11. ASPIRIN. [Concomitant]
     Active Substance: ASPIRIN
     Indication: NASOPHARYNGITIS
     Dosage: 81 MG, QD
     Route: 048
  12. CETAPHIL                           /00498501/ [Concomitant]
     Indication: PRODUCT USED FOR UNKNOWN INDICATION
     Dosage: UNK
     Route: 065
  13. JAKAFI [Suspect]
     Active Substance: RUXOLITINIB
     Dosage: 5 MG, BID
     Route: 048
     Dates: start: 20180612

REACTIONS (51)
  - Dry mouth [Unknown]
  - Wrong technique in product usage process [Unknown]
  - Vomiting [Unknown]
  - Micturition urgency [Unknown]
  - Diarrhoea [Unknown]
  - Nausea [Unknown]
  - Fatigue [Unknown]
  - Migraine [Unknown]
  - Ear pain [Not Recovered/Not Resolved]
  - Abdominal discomfort [Not Recovered/Not Resolved]
  - Full blood count abnormal [Unknown]
  - Abdominal pain upper [Unknown]
  - Tachycardia [Recovered/Resolved]
  - Muscular weakness [Unknown]
  - Bone pain [Unknown]
  - Therapeutic response unexpected [Unknown]
  - Red cell distribution width increased [Unknown]
  - Mean platelet volume increased [Unknown]
  - Cardiac disorder [Unknown]
  - Abdominal pain [Unknown]
  - Loss of consciousness [Unknown]
  - Blindness transient [Unknown]
  - Malaise [Recovered/Resolved]
  - Anxiety [Not Recovered/Not Resolved]
  - Hypersensitivity [Unknown]
  - Peripheral swelling [Recovered/Resolved]
  - White blood cell count decreased [Recovered/Resolved]
  - Haemoglobin decreased [Recovered/Resolved]
  - Gastric dilatation [Unknown]
  - Blood lactate dehydrogenase increased [Unknown]
  - Hypoaesthesia [Unknown]
  - Pain [Unknown]
  - Stress [Not Recovered/Not Resolved]
  - Influenza like illness [Unknown]
  - Product administration error [Unknown]
  - Depression [Unknown]
  - Dizziness [Unknown]
  - Feeling abnormal [Unknown]
  - Red blood cell count abnormal [Unknown]
  - Oral herpes [Unknown]
  - Rash [Unknown]
  - Dysphonia [Unknown]
  - Platelet count increased [Unknown]
  - Memory impairment [Unknown]
  - Constipation [Unknown]
  - Somnolence [Unknown]
  - Sinus headache [Unknown]
  - Headache [Not Recovered/Not Resolved]
  - Haematocrit decreased [Recovered/Resolved]
  - Cystitis [Unknown]
  - Cough [Unknown]

NARRATIVE: CASE EVENT DATE: 20160106
